FAERS Safety Report 9951432 (Version 1)
Quarter: 2014Q1

REPORT INFORMATION
  Report Type: Spontaneous
  Country: DK (occurrence: DK)
  Receive Date: 20140304
  Receipt Date: 20140304
  Transmission Date: 20141002
  Serious: Yes (Other)
  Sender: FDA-Public Use
  Company Number: PHHY2014DK023005

PATIENT
  Sex: Female

DRUGS (11)
  1. ZOMETA [Suspect]
     Indication: BREAST CANCER
  2. FEMAR [Suspect]
     Indication: BREAST CANCER
  3. TAMOXIFEN [Suspect]
     Indication: BREAST CANCER
  4. VINORELBINE [Suspect]
     Indication: BREAST CANCER
  5. ERIBULIN [Suspect]
     Indication: BREAST CANCER
  6. GEMZAR [Suspect]
     Indication: BREAST CANCER
  7. HERCEPTIN [Suspect]
     Indication: BREAST CANCER
  8. LAPATINIB [Suspect]
     Indication: BREAST CANCER
  9. TAXOL [Suspect]
     Indication: BREAST CANCER
  10. TAXOTERE [Suspect]
     Indication: BREAST CANCER
  11. XELODA [Suspect]
     Indication: BREAST CANCER

REACTIONS (6)
  - Nervous system disorder [Unknown]
  - Lung infiltration [Unknown]
  - Pleural effusion [Unknown]
  - Metastases to bone [Unknown]
  - Metastases to liver [Not Recovered/Not Resolved]
  - Disease progression [Not Recovered/Not Resolved]
